APPROVED DRUG PRODUCT: EPIRUBICIN HYDROCHLORIDE
Active Ingredient: EPIRUBICIN HYDROCHLORIDE
Strength: 50MG/25ML (2MG/ML)
Dosage Form/Route: INJECTABLE;INJECTION
Application: A090163 | Product #001 | TE Code: AP
Applicant: EPIC PHARMA LLC
Approved: Jun 24, 2009 | RLD: No | RS: No | Type: RX